FAERS Safety Report 4749785-5 (Version None)
Quarter: 2005Q3

REPORT INFORMATION
  Report Type: 
  Country: None (occurrence: None)
  Receive Date: 20050819
  Receipt Date: 20050819
  Transmission Date: 20060218
  Serious: Yes (Other)
  Sender: FDA-Public Use
  Company Number: None

PATIENT
  Age: 43 Year
  Sex: Male
  Weight: 43.0917 kg

DRUGS (5)
  1. TENOFOVIR 300 MG [Suspect]
     Dosage: 300 MG PO QD
     Route: 048
  2. FOSAMAX [Concomitant]
  3. OTC CHROMIMUM [Concomitant]
  4. MV [Concomitant]
  5. OMEGA 3 [Concomitant]

REACTIONS (3)
  - DRUG TOXICITY [None]
  - ERYTHEMA MULTIFORME [None]
  - NERVOUS SYSTEM DISORDER [None]
